FAERS Safety Report 24990453 (Version 1)
Quarter: 2025Q1

REPORT INFORMATION
  Report Type: Spontaneous
  Country: GB (occurrence: GB)
  Receive Date: 20250220
  Receipt Date: 20250220
  Transmission Date: 20250409
  Serious: Yes (Other)
  Sender: TEVA
  Company Number: None

PATIENT
  Age: 59 Year
  Sex: Female
  Weight: 73 kg

DRUGS (1)
  1. ALENDRONIC ACID [Suspect]
     Active Substance: ALENDRONIC ACID
     Indication: Osteopenia
     Dosage: DURATION: 104 DAYS
     Route: 065
     Dates: start: 20241101, end: 20250212

REACTIONS (1)
  - Cutaneous symptom [Not Recovered/Not Resolved]

NARRATIVE: CASE EVENT DATE: 20241124
